FAERS Safety Report 21535222 (Version 2)
Quarter: 2022Q4

REPORT INFORMATION
  Report Type: Spontaneous
  Country: US (occurrence: US)
  Receive Date: 20221101
  Receipt Date: 20221226
  Transmission Date: 20230112
  Serious: No
  Sender: FDA-Public Use
  Company Number: US-MIGRATION_PFIZER-2022BHV001930

PATIENT

DRUGS (2)
  1. NURTEC ODT [Suspect]
     Active Substance: RIMEGEPANT SULFATE
     Indication: Migraine
     Route: 065
  2. ADVIL [Concomitant]
     Active Substance: IBUPROFEN
     Indication: Migraine
     Dosage: BUT EVERYTIME AFTER WHEN I FEEL ONE COMING ON I TAKE IT WITH ADVIL I FEEL IT^S A GOOD COMBO FOR ME,
     Route: 065

REACTIONS (1)
  - Drug ineffective [Recovered/Resolved]
